FAERS Safety Report 8125976-0 (Version None)
Quarter: 2012Q1

REPORT INFORMATION
  Report Type: 
  Country: None (occurrence: None)
  Receive Date: 20120209
  Receipt Date: 20120130
  Transmission Date: 20120608
  Serious: Yes (Hospitalization)
  Sender: FDA-Public Use
  Company Number: JP-NOVOPROD-340226

PATIENT
  Age: 41 Year
  Sex: Female
  Weight: 68 kg

DRUGS (13)
  1. PURSENNID                          /00142207/ [Concomitant]
     Indication: CONSTIPATION
     Dosage: 24 MG, QD
     Route: 048
     Dates: start: 20090817
  2. VICTOZA [Suspect]
     Indication: TYPE 2 DIABETES MELLITUS
     Dosage: 0.9 MG, QD
     Route: 058
     Dates: start: 20110809, end: 20111120
  3. LEVOTHYROXINE SODIUM [Concomitant]
     Indication: HYPOTHYROIDISM
     Dosage: 100 G, QD
     Route: 048
     Dates: start: 20090801
  4. SINGULAIR [Concomitant]
     Indication: ASTHMA
     Dosage: 10 G, QD
     Route: 048
     Dates: start: 20110901
  5. RABEPRAZOLE SODIUM [Concomitant]
     Indication: GASTROOESOPHAGEAL REFLUX DISEASE
     Dosage: 10 G, QD
     Route: 048
     Dates: start: 20090901
  6. AMARYL [Concomitant]
     Indication: TYPE 2 DIABETES MELLITUS
     Dosage: 0.5 MG, QD
     Route: 048
     Dates: start: 20111024, end: 20111101
  7. PLETAL [Concomitant]
     Indication: SINUS BRADYCARDIA
     Dosage: 100 G, QD
     Route: 048
     Dates: start: 20100726
  8. ASTOMIN                            /00426502/ [Concomitant]
     Indication: ASTHMA
     Dosage: 20 MG, QD
     Dates: start: 20110901
  9. BENZALIN                           /00036201/ [Concomitant]
     Indication: INSOMNIA
     Dosage: 5 G, QD
     Route: 048
     Dates: start: 20090817
  10. CEFAZOLIN SODIUM [Concomitant]
     Indication: CONSTIPATION
     Dosage: 2 G, QD
     Route: 048
     Dates: start: 20110128
  11. LANSOPRAZOLE [Concomitant]
  12. DEPAS [Concomitant]
     Indication: INSOMNIA
     Dosage: 0.5 MG, QD
     Route: 048
     Dates: start: 20090817
  13. CRESTOR [Concomitant]
     Indication: HYPERLIPIDAEMIA
     Dosage: 2.5 G, QD
     Route: 048
     Dates: start: 20110128

REACTIONS (3)
  - HYPOGLYCAEMIA [None]
  - HYPOGLYCAEMIC UNCONSCIOUSNESS [None]
  - DIABETES MELLITUS INADEQUATE CONTROL [None]
